FAERS Safety Report 13508022 (Version 2)
Quarter: 2017Q2

REPORT INFORMATION
  Report Type: Spontaneous
  Country: US (occurrence: US)
  Receive Date: 20170503
  Receipt Date: 20170508
  Transmission Date: 20170830
  Serious: No
  Sender: FDA-Public Use
  Company Number: US-PFIZER INC-2017191053

PATIENT
  Age: 73 Year
  Sex: Female

DRUGS (2)
  1. SUTENT [Suspect]
     Active Substance: SUNITINIB MALATE
     Dosage: 50 MG, CYCLIC (DAILY FOR 28 DAYS THEN OFF 14 DAYS)
     Route: 048
     Dates: start: 20170322, end: 20170423
  2. SUTENT [Suspect]
     Active Substance: SUNITINIB MALATE
     Dosage: 50 MG, UNK
     Dates: start: 201703, end: 201704

REACTIONS (5)
  - Productive cough [Unknown]
  - Pyrexia [Unknown]
  - Dysgeusia [Unknown]
  - Dry mouth [Unknown]
  - Inflammation [Unknown]
